FAERS Safety Report 5662810-2 (Version None)
Quarter: 2008Q1

REPORT INFORMATION
  Report Type: 
  Country: None (occurrence: None)
  Receive Date: 20080307
  Receipt Date: 20080219
  Transmission Date: 20080703
  Serious: Yes (Life-Threatening, Hospitalization)
  Sender: FDA-Public Use
  Company Number: AE071001.ACA

PATIENT
  Sex: Female
  Weight: 78.0187 kg

DRUGS (15)
  1. AMICAR [Suspect]
     Dosage: 2 G PO BID
     Route: 048
     Dates: start: 20070301, end: 20070924
  2. OMACOR [Suspect]
     Indication: HYPERLIPIDAEMIA
  3. ASPIRIN [Concomitant]
  4. CLARITIN [Concomitant]
  5. CINNAMIN [Concomitant]
  6. ESTROGEN TABLETS [Concomitant]
  7. GARLIC [Concomitant]
  8. GEMFIBROZIL [Concomitant]
  9. LEVOTHYROXINE SODIUM [Concomitant]
  10. METFORMIN HCL [Concomitant]
  11. MULTI-VITAMIN [Concomitant]
  12. POTASSIUM CHLORIDE [Concomitant]
  13. PROENZYME [Concomitant]
  14. REQUIP [Concomitant]
  15. ZETIA [Concomitant]

REACTIONS (6)
  - DRUG DISPENSING ERROR [None]
  - GROIN PAIN [None]
  - INTRACRANIAL ANEURYSM [None]
  - MIGRAINE [None]
  - NIGHT SWEATS [None]
  - PAIN IN EXTREMITY [None]
